FAERS Safety Report 4500191-8 (Version None)
Quarter: 2004Q3

REPORT INFORMATION
  Report Type: 
  Country: None (occurrence: None)
  Receive Date: 20040927
  Receipt Date: 20040715
  Transmission Date: 20050211
  Serious: No
  Sender: FDA-Public Use
  Company Number: USA040772586

PATIENT
  Age: 30 Year
  Sex: Male

DRUGS (2)
  1. STRATTERA [Suspect]
     Indication: ATTENTION DEFICIT/HYPERACTIVITY DISORDER
     Dosage: 40 MG DAY
     Dates: start: 20040513
  2. XANAX (ALPRAZOLAM DUM) [Concomitant]

REACTIONS (4)
  - DELUSIONAL DISORDER, PERSECUTORY TYPE [None]
  - PARAESTHESIA [None]
  - SLEEP DISORDER [None]
  - TREMOR [None]
